FAERS Safety Report 12478344 (Version 1)
Quarter: 2016Q2

REPORT INFORMATION
  Report Type: Spontaneous
  Country: CA (occurrence: CA)
  Receive Date: 20160617
  Receipt Date: 20160617
  Transmission Date: 20160815
  Serious: Yes (Hospitalization)
  Sender: FDA-Public Use
  Company Number: CA-ASTRAZENECA-2016SE64206

PATIENT
  Age: 82 Year
  Sex: Female

DRUGS (16)
  1. ONGLYZA [Suspect]
     Active Substance: SAXAGLIPTIN HYDROCHLORIDE
     Indication: TYPE 2 DIABETES MELLITUS
     Route: 048
  2. FERROUS SULFATE. [Concomitant]
     Active Substance: FERROUS SULFATE
  3. SIMVASTATIN. [Concomitant]
     Active Substance: SIMVASTATIN
  4. VITAMIN D [Concomitant]
     Active Substance: CHOLECALCIFEROL
  5. ACETAMINOPHEN. [Concomitant]
     Active Substance: ACETAMINOPHEN
  6. GLICLAZIDE [Concomitant]
     Active Substance: GLICLAZIDE
  7. ISMN [Concomitant]
     Active Substance: ISOSORBIDE MONONITRATE
  8. METOPROLOL. [Concomitant]
     Active Substance: METOPROLOL
  9. NIFEDIPINE XL [Concomitant]
     Active Substance: NIFEDIPINE
  10. ASA [Concomitant]
     Active Substance: ASPIRIN
  11. CALCIUM CARBONATE. [Concomitant]
     Active Substance: CALCIUM CARBONATE
  12. NITROGLYCERIN. [Concomitant]
     Active Substance: NITROGLYCERIN
  13. BROMAZEPAM [Concomitant]
     Active Substance: BROMAZEPAM
  14. LEVOTHYROXINE. [Concomitant]
     Active Substance: LEVOTHYROXINE
  15. LACTULOSE. [Concomitant]
     Active Substance: LACTULOSE
  16. VALSARTAN. [Concomitant]
     Active Substance: VALSARTAN

REACTIONS (8)
  - Hypercalcaemia [Unknown]
  - Blood alkaline phosphatase increased [Unknown]
  - Urinary tract infection [Unknown]
  - Atrial fibrillation [Unknown]
  - Gamma-glutamyltransferase increased [Unknown]
  - Pancreatitis [Unknown]
  - Chest pain [Unknown]
  - Renal impairment [Unknown]
